FAERS Safety Report 23693706 (Version 34)
Quarter: 2025Q1

REPORT INFORMATION
  Report Type: Report from Study
  Country: CO (occurrence: CO)
  Receive Date: 20240401
  Receipt Date: 20250324
  Transmission Date: 20250409
  Serious: Yes (Hospitalization, Other)
  Sender: TAKEDA
  Company Number: CO-TAKEDA-2024TUS013449

PATIENT
  Age: 1 Year
  Sex: Male
  Weight: 12 kg

DRUGS (4)
  1. TEDUGLUTIDE [Suspect]
     Active Substance: TEDUGLUTIDE
     Indication: Short-bowel syndrome
     Dosage: 0.5 MILLIGRAM, QD
  2. TEDUGLUTIDE [Suspect]
     Active Substance: TEDUGLUTIDE
     Dosage: 0.6 MILLIGRAM, QD
  3. TEDUGLUTIDE [Suspect]
     Active Substance: TEDUGLUTIDE
  4. TEDUGLUTIDE [Suspect]
     Active Substance: TEDUGLUTIDE

REACTIONS (19)
  - Faeces discoloured [Unknown]
  - Device dislocation [Unknown]
  - Pneumonia [Unknown]
  - Vomiting [Unknown]
  - Product distribution issue [Recovered/Resolved]
  - Product dose omission issue [Unknown]
  - Product use issue [Unknown]
  - Inappropriate schedule of product administration [Unknown]
  - Rash [Not Recovered/Not Resolved]
  - Weight increased [Unknown]
  - Body height increased [Unknown]
  - Injection site vesicles [Not Recovered/Not Resolved]
  - Urticaria [Unknown]
  - Treatment noncompliance [Unknown]
  - Product availability issue [Unknown]
  - Erythema [Not Recovered/Not Resolved]
  - Pruritus [Unknown]
  - Product prescribing error [Unknown]
  - Incorrect dose administered [Unknown]

NARRATIVE: CASE EVENT DATE: 20231201
